FAERS Safety Report 21234261 (Version 2)
Quarter: 2022Q3

REPORT INFORMATION
  Report Type: Report from Study
  Country: US (occurrence: US)
  Receive Date: 20220819
  Receipt Date: 20220823
  Transmission Date: 20221027
  Serious: Yes (Other)
  Sender: FDA-Public Use
  Company Number: US-JAZZ-2022-US-026604

PATIENT
  Age: 27 Year
  Sex: Male

DRUGS (1)
  1. SOLRIAMFETOL [Suspect]
     Active Substance: SOLRIAMFETOL
     Indication: Product used for unknown indication
     Dosage: UNK

REACTIONS (9)
  - Suicidal ideation [Unknown]
  - Surgery [Unknown]
  - Bipolar I disorder [Unknown]
  - Oropharyngeal discomfort [Unknown]
  - Hypotension [Unknown]
  - Generalised anxiety disorder [Unknown]
  - Attention deficit hyperactivity disorder [Unknown]
  - Depression [Unknown]
  - Drug ineffective [Unknown]

NARRATIVE: CASE EVENT DATE: 20200101
